FAERS Safety Report 12573802 (Version 1)
Quarter: 2016Q3

REPORT INFORMATION
  Report Type: Spontaneous
  Country: US (occurrence: US)
  Receive Date: 20160720
  Receipt Date: 20160720
  Transmission Date: 20161109
  Serious: No
  Sender: FDA-Public Use
  Company Number: US-APOTEX-2016AP008948

PATIENT
  Sex: Female

DRUGS (2)
  1. OLOPATADINE HYDROCHLORIDE NASAL [Suspect]
     Active Substance: OLOPATADINE HYDROCHLORIDE
     Indication: PRODUCT USED FOR UNKNOWN INDICATION
     Dosage: 1 SPRAY IN EACH NOSTRIL ONCE DAILY AT NIGHT
     Route: 045
  2. OLOPATADINE HYDROCHLORIDE NASAL [Suspect]
     Active Substance: OLOPATADINE HYDROCHLORIDE
     Dosage: 1 SPRAY IN EACH NOSTRIL ONCE DAILY AT NIGHT
     Route: 045

REACTIONS (3)
  - Drug ineffective [Unknown]
  - Inappropriate schedule of drug administration [Unknown]
  - Product taste abnormal [Unknown]
